FAERS Safety Report 9300825 (Version 3)
Quarter: 2013Q2

REPORT INFORMATION
  Report Type: Report from Study
  Country: JP (occurrence: JP)
  Receive Date: 20130521
  Receipt Date: 20130618
  Transmission Date: 20140414
  Serious: Yes (Hospitalization)
  Sender: FDA-Public Use
  Company Number: JP-PFIZER INC-2013153863

PATIENT
  Age: 62 Year
  Sex: Female
  Weight: 44.1 kg

DRUGS (17)
  1. LYRICA [Suspect]
     Indication: CANCER PAIN
     Dosage: ^100 MG, TABLET^
     Route: 048
     Dates: start: 20130419
  2. PLACEBO [Suspect]
     Indication: LUNG NEOPLASM MALIGNANT
     Dosage: 1 DF, EVERY 3 WEEKS
     Route: 042
     Dates: start: 20130110, end: 20130110
  3. PLACEBO [Suspect]
     Dosage: 1 DF, EVERY 3 WEEKS
     Dates: start: 20130314, end: 20130314
  4. PLACEBO [Suspect]
     Dosage: 1 DF, EVERY 3 WEEKS
     Dates: start: 20130425, end: 20130425
  5. TARCEVA [Suspect]
     Indication: LUNG NEOPLASM MALIGNANT
     Dosage: 150 MG, 1X/DAY, MOST RECENT PRIOR TO EVENT NAUSEA: 26APR2013
     Route: 048
     Dates: start: 20130110, end: 20130416
  6. TARCEVA [Suspect]
     Dosage: 100 MG DAILY
     Route: 048
     Dates: end: 20130505
  7. TRAMACET [Concomitant]
     Indication: CANCER PAIN
     Dosage: UNK
     Dates: start: 20120713
  8. MAGMITT [Concomitant]
     Indication: CONSTIPATION
     Dosage: UNK
     Dates: start: 20120723
  9. MUCOSTA [Concomitant]
     Indication: GASTRITIS
     Dosage: UNK
     Dates: start: 20120625
  10. CRESTOR [Concomitant]
     Indication: HYPERLIPIDAEMIA
     Dosage: UNK
     Dates: start: 2009
  11. ZOMETA [Concomitant]
     Indication: METASTASES TO BONE
     Dosage: UNK
     Dates: start: 20120719
  12. GASMOTIN [Concomitant]
     Indication: GASTRITIS
     Dosage: UNK
     Dates: start: 20130109
  13. DEXALTIN [Concomitant]
     Dosage: UNK
     Dates: start: 20130115
  14. TAKEPRON [Concomitant]
     Indication: GASTRITIS
     Dosage: UNK
     Dates: start: 20120927
  15. RINDERON-VG [Concomitant]
     Indication: DERMATITIS ACNEIFORM
     Dosage: UNK
     Dates: start: 20130124
  16. LOPEMIN [Concomitant]
     Indication: DIARRHOEA
     Dosage: UNK
     Dates: start: 20130131
  17. VITAMEDIN CAPSULE [Concomitant]

REACTIONS (2)
  - Decreased appetite [Recovering/Resolving]
  - Nausea [Recovering/Resolving]
